FAERS Safety Report 22335486 (Version 1)
Quarter: 2023Q2

REPORT INFORMATION
  Report Type: Spontaneous
  Country: US (occurrence: None)
  Receive Date: 20230518
  Receipt Date: 20230518
  Transmission Date: 20230722
  Serious: No
  Sender: FDA-Public Use
  Company Number: US-ROCHE-3290084

PATIENT
  Age: 53 Year
  Sex: Female
  Weight: 78.542 kg

DRUGS (6)
  1. ACTEMRA [Suspect]
     Active Substance: TOCILIZUMAB
     Indication: Rheumatoid arthritis
     Dosage: YES, STRENGTH:162MG/0.9ML
     Route: 058
     Dates: start: 202212
  2. ACTEMRA [Suspect]
     Active Substance: TOCILIZUMAB
  3. ACTEMRA [Suspect]
     Active Substance: TOCILIZUMAB
     Indication: Rheumatoid arthritis
     Dosage: DOSING BASED ON WEIGHT AND HEIGHT,
     Route: 041
     Dates: start: 2020, end: 202212
  4. TYLENOL ARTHRITIS PAIN [Concomitant]
     Active Substance: ACETAMINOPHEN
  5. PREDNISONE [Concomitant]
     Active Substance: PREDNISONE
  6. LEVOTHYROXINE [Concomitant]
     Active Substance: LEVOTHYROXINE

REACTIONS (10)
  - Vein collapse [Not Recovered/Not Resolved]
  - Contusion [Unknown]
  - Injection site erythema [Recovered/Resolved]
  - Injection site pruritus [Recovered/Resolved]
  - Thyroid hormones increased [Not Recovered/Not Resolved]
  - Rheumatoid arthritis [Unknown]
  - Product complaint [Unknown]
  - Poor quality product administered [Unknown]
  - Drug ineffective [Unknown]
  - Carpal tunnel syndrome [Unknown]

NARRATIVE: CASE EVENT DATE: 20221101
